FAERS Safety Report 11728358 (Version 4)
Quarter: 2017Q1

REPORT INFORMATION
  Report Type: Spontaneous
  Country: US (occurrence: US)
  Receive Date: 20151112
  Receipt Date: 20170103
  Transmission Date: 20170428
  Serious: Yes (Death)
  Sender: FDA-Public Use
  Company Number: US-PFIZER INC-2015386497

PATIENT
  Age: 71 Year
  Sex: Female
  Weight: 64 kg

DRUGS (2)
  1. AROMASIN [Suspect]
     Active Substance: EXEMESTANE
     Dosage: 25 MG, UNK
     Dates: start: 201507, end: 20151106
  2. AFINITOR [Concomitant]
     Active Substance: EVEROLIMUS
     Dosage: 5 MG, 1X/DAY

REACTIONS (3)
  - Death [Fatal]
  - Cough [Unknown]
  - Influenza [Unknown]

NARRATIVE: CASE EVENT DATE: 2015
